FAERS Safety Report 6236796-6 (Version None)
Quarter: 2009Q2

REPORT INFORMATION
  Report Type: 
  Country: None (occurrence: None)
  Receive Date: 20090619
  Receipt Date: 20090612
  Transmission Date: 20091009
  Serious: Yes (Other)
  Sender: FDA-Public Use
  Company Number: PHHO2009DE07393

PATIENT
  Sex: Male
  Weight: 66.5 kg

DRUGS (4)
  1. MYFORTIC [Suspect]
     Indication: RENAL TRANSPLANT
     Dosage: UNK
  2. SANDIMMUNE [Suspect]
     Indication: RENAL TRANSPLANT
  3. NO TREATMENT RECEIVED NOMED [Suspect]
     Indication: RENAL TRANSPLANT
     Dosage: NO TREATMENT
  4. DECORTIN [Suspect]
     Indication: RENAL TRANSPLANT

REACTIONS (4)
  - ARTERIOVENOUS FISTULA OPERATION [None]
  - POST PROCEDURAL COMPLICATION [None]
  - RENAL ARTERY THROMBOSIS [None]
  - RENAL PELVIS FISTULA [None]
